FAERS Safety Report 17940992 (Version 2)
Quarter: 2020Q3

REPORT INFORMATION
  Report Type: Report from Study
  Country: US (occurrence: US)
  Receive Date: 20200625
  Receipt Date: 20200717
  Transmission Date: 20201103
  Serious: No
  Sender: FDA-Public Use
  Company Number: US-SA-2020SA156181

PATIENT

DRUGS (2)
  1. DUPILUMAB [Suspect]
     Active Substance: DUPILUMAB
     Indication: ASTHMA
  2. ADVAIR HFA [Concomitant]
     Active Substance: FLUTICASONE PROPIONATE\SALMETEROL XINAFOATE
     Indication: ASTHMA

REACTIONS (9)
  - Wheezing [Unknown]
  - Pruritus [Unknown]
  - Eczema [Unknown]
  - Asthma [Unknown]
  - Insomnia [Unknown]
  - Chest discomfort [Unknown]
  - Middle insomnia [Unknown]
  - Dyspnoea [Unknown]
  - Therapeutic response decreased [Unknown]
